FAERS Safety Report 22113396 (Version 1)
Quarter: 2023Q1

REPORT INFORMATION
  Report Type: Report from Study
  Country: EC (occurrence: None)
  Receive Date: 20230320
  Receipt Date: 20230320
  Transmission Date: 20230418
  Serious: Yes (Other)
  Sender: FDA-Public Use
  Company Number: EC-Merck Healthcare KGaA-9390365

PATIENT
  Age: 16 Year
  Sex: Female

DRUGS (2)
  1. SAIZEN [Suspect]
     Active Substance: SOMATROPIN
     Indication: Growth hormone deficiency
     Route: 058
     Dates: start: 20220309
  2. ESTRADIOL VALERATE\NORGESTREL [Suspect]
     Active Substance: ESTRADIOL VALERATE\NORGESTREL
     Indication: Product used for unknown indication

REACTIONS (1)
  - Osteonecrosis [Unknown]

NARRATIVE: CASE EVENT DATE: 20221201
